FAERS Safety Report 15412601 (Version 2)
Quarter: 2018Q4

REPORT INFORMATION
  Report Type: Spontaneous
  Country: GB (occurrence: GB)
  Receive Date: 20180921
  Receipt Date: 20181102
  Transmission Date: 20190204
  Serious: Yes (Other)
  Sender: FDA-Public Use
  Company Number: GB-009507513-1809GBR007494

PATIENT
  Age: 71 Year
  Sex: Male
  Weight: 105 kg

DRUGS (3)
  1. NASONEX [Suspect]
     Active Substance: MOMETASONE FUROATE
     Indication: UPPER-AIRWAY COUGH SYNDROME
     Dosage: 4 DF, QD
     Route: 045
     Dates: start: 20180812, end: 20180815
  2. PREGABALIN. [Concomitant]
     Active Substance: PREGABALIN
     Dosage: UNK
  3. TAMSULOSIN HYDROCHLORIDE. [Concomitant]
     Active Substance: TAMSULOSIN HYDROCHLORIDE
     Dosage: UNK

REACTIONS (3)
  - Nausea [Recovered/Resolved]
  - Headache [Recovered/Resolved]
  - Vomiting [Recovered/Resolved]

NARRATIVE: CASE EVENT DATE: 20180813
